FAERS Safety Report 7498079-6 (Version None)
Quarter: 2011Q2

REPORT INFORMATION
  Report Type: 
  Country: None (occurrence: None)
  Receive Date: 20110524
  Receipt Date: 20110512
  Transmission Date: 20111010
  Serious: No
  Sender: FDA-Public Use
  Company Number: US-BIOGENIDEC-2011BI018335

PATIENT
  Age: 72 Year
  Sex: Female

DRUGS (2)
  1. TYSABRI [Suspect]
     Indication: MULTIPLE SCLEROSIS
     Route: 042
     Dates: start: 20081201, end: 20101201
  2. TYSABRI [Suspect]
     Route: 042
     Dates: start: 20101201

REACTIONS (7)
  - STRESS [None]
  - BLADDER SPASM [None]
  - SINUSITIS [None]
  - CYSTITIS [None]
  - ASTHENIA [None]
  - NECK PAIN [None]
  - MALAISE [None]
